FAERS Safety Report 24391390 (Version 1)
Quarter: 2024Q4

REPORT INFORMATION
  Report Type: Spontaneous
  Country: US (occurrence: US)
  Receive Date: 20241003
  Receipt Date: 20241003
  Transmission Date: 20250114
  Serious: Yes (Life-Threatening, Other)
  Sender: PFIZER
  Company Number: US-PFIZER INC-PV202400126522

PATIENT
  Age: 83 Year
  Sex: Female

DRUGS (6)
  1. VANCOMYCIN HYDROCHLORIDE [Suspect]
     Active Substance: VANCOMYCIN HYDROCHLORIDE
     Indication: Clostridium difficile infection
     Dosage: UNK
     Route: 042
  2. VANCOMYCIN HYDROCHLORIDE [Suspect]
     Active Substance: VANCOMYCIN HYDROCHLORIDE
     Indication: Escherichia infection
     Dosage: UNK
     Route: 048
  3. VANCOMYCIN HYDROCHLORIDE [Suspect]
     Active Substance: VANCOMYCIN HYDROCHLORIDE
     Indication: Klebsiella infection
  4. MEROPENEM [Suspect]
     Active Substance: MEROPENEM
     Indication: Clostridium difficile infection
     Dosage: UNK
     Route: 042
  5. MEROPENEM [Suspect]
     Active Substance: MEROPENEM
     Indication: Escherichia infection
  6. MEROPENEM [Suspect]
     Active Substance: MEROPENEM
     Indication: Klebsiella infection

REACTIONS (1)
  - Drug ineffective [Unknown]
